FAERS Safety Report 4976187-9 (Version None)
Quarter: 2006Q2

REPORT INFORMATION
  Report Type: 
  Country: None (occurrence: None)
  Receive Date: 20060419
  Receipt Date: 20060406
  Transmission Date: 20061013
  Serious: Yes (Hospitalization)
  Sender: FDA-Public Use
  Company Number: US-JNJFOC-20060402307

PATIENT
  Sex: Female
  Weight: 70.31 kg

DRUGS (18)
  1. FENTANYL TRANSDERMAL SYSTEM [Suspect]
     Route: 062
  2. PROTONIX [Concomitant]
     Route: 048
  3. LASIX [Concomitant]
     Route: 048
  4. CLONAZEPAM [Concomitant]
     Route: 048
  5. ATENOLOL [Concomitant]
     Indication: BLOOD PRESSURE
     Route: 048
  6. POTASSIUM [Concomitant]
     Route: 048
  7. GLIPIZIDE ER [Concomitant]
     Route: 048
  8. METFORMIN [Concomitant]
     Route: 048
  9. INSULIN [Concomitant]
     Dosage: 25 UNITS (30/70), 2 IN 1 DAY, SUBCUTANEOUS
     Route: 058
  10. ASPIRIN [Concomitant]
     Route: 048
  11. GABAPENTIN [Concomitant]
     Route: 048
  12. GABAPENTIN [Concomitant]
     Indication: PAIN
     Route: 048
  13. DARVOCET [Concomitant]
     Route: 048
  14. DARVOCET [Concomitant]
     Indication: PAIN
     Dosage: THREE TIMES DAILY AS NECESSARY
     Route: 048
  15. ADVAIR DISKUS 100/50 [Concomitant]
     Route: 055
  16. ADVAIR DISKUS 100/50 [Concomitant]
     Dosage: 2 PUFFS DAILY
     Route: 055
  17. ALBUTEROL [Concomitant]
     Dosage: 2 PUFFS DAILY
     Route: 055
  18. LISINOPRIL [Concomitant]
     Indication: BLOOD PRESSURE
     Route: 048

REACTIONS (6)
  - CONFUSIONAL STATE [None]
  - FLUID RETENTION [None]
  - LOSS OF CONSCIOUSNESS [None]
  - PNEUMONITIS [None]
  - RESTLESS LEGS SYNDROME [None]
  - VIRAL INFECTION [None]
